FAERS Safety Report 17579659 (Version 2)
Quarter: 2020Q2

REPORT INFORMATION
  Report Type: Spontaneous
  Country: US (occurrence: US)
  Receive Date: 20200325
  Receipt Date: 20200413
  Transmission Date: 20200713
  Serious: No
  Sender: FDA-Public Use
  Company Number: US-BAYER-2020-049584

PATIENT
  Age: 91 Year
  Sex: Female

DRUGS (1)
  1. ALEVE [Suspect]
     Active Substance: NAPROXEN SODIUM
     Indication: BACK PAIN
     Dosage: 2 DF, QD
     Route: 048
     Dates: start: 20200320, end: 20200323

REACTIONS (3)
  - Product packaging quantity issue [None]
  - Drug ineffective [Unknown]
  - Product packaging issue [None]

NARRATIVE: CASE EVENT DATE: 20200323
